FAERS Safety Report 26157333 (Version 1)
Quarter: 2025Q4

REPORT INFORMATION
  Report Type: Spontaneous
  Country: EU (occurrence: EU)
  Receive Date: 20251215
  Receipt Date: 20251215
  Transmission Date: 20260119
  Serious: Yes (Hospitalization)
  Sender: TEVA
  Company Number: EU-DCGMA-25206112

PATIENT
  Age: 19 Year
  Sex: Male
  Weight: 66 kg

DRUGS (1)
  1. LISDEXAMFETAMINE [Suspect]
     Active Substance: LISDEXAMFETAMINE
     Indication: Attention deficit hyperactivity disorder
     Route: 048
     Dates: start: 20191126, end: 20251001

REACTIONS (1)
  - Muscle enzyme abnormal [Unknown]

NARRATIVE: CASE EVENT DATE: 20251001
